FAERS Safety Report 21292575 (Version 1)
Quarter: 2022Q3

REPORT INFORMATION
  Report Type: Spontaneous
  Country: FR (occurrence: FR)
  Receive Date: 20220905
  Receipt Date: 20220905
  Transmission Date: 20221027
  Serious: Yes (Other)
  Sender: FDA-Public Use
  Company Number: FR-NOVARTISPH-NVSC2022FR175911

PATIENT
  Sex: Male
  Weight: 75 kg

DRUGS (4)
  1. LUTATHERA [Suspect]
     Active Substance: LUTETIUM OXODOTREOTIDE LU-177
     Indication: Neuroendocrine tumour
     Dosage: UNK (SECOND CYCLE)
     Route: 065
  2. LUTATHERA [Suspect]
     Active Substance: LUTETIUM OXODOTREOTIDE LU-177
     Dosage: 7508 MBQ
     Route: 042
  3. ARGININE\LYSINE [Suspect]
     Active Substance: ARGININE\LYSINE
     Indication: Product used for unknown indication
     Dosage: UNK (STRENGTH: 25 G/25 G, 1 L)
     Route: 042
  4. ONDANSETRON [Suspect]
     Active Substance: ONDANSETRON
     Indication: Product used for unknown indication
     Dosage: 8 MG
     Route: 042

REACTIONS (7)
  - Laryngeal oedema [Recovered/Resolved]
  - Face oedema [Recovered/Resolved]
  - Oedema peripheral [Recovered/Resolved]
  - Dysphonia [Recovered/Resolved]
  - Hypersensitivity [Unknown]
  - Diarrhoea [Recovered/Resolved]
  - Peripheral swelling [Unknown]

NARRATIVE: CASE EVENT DATE: 20220727
